FAERS Safety Report 17667324 (Version 1)
Quarter: 2020Q2

REPORT INFORMATION
  Report Type: Report from Study
  Country: US (occurrence: US)
  Receive Date: 20200414
  Receipt Date: 20200414
  Transmission Date: 20200713
  Serious: Yes (Death, Other)
  Sender: FDA-Public Use
  Company Number: US-ARIAD PHARMACEUTICALS, INC-2017US008354

PATIENT
  Age: 71 Year
  Sex: Male

DRUGS (2)
  1. PONATINIB [Suspect]
     Active Substance: PONATINIB
     Indication: CHRONIC MYELOID LEUKAEMIA (IN REMISSION)
     Dosage: 15 MILLIGRAM, QD
     Route: 048
     Dates: start: 20160818
  2. IMBRUVICA [Concomitant]
     Active Substance: IBRUTINIB
     Dosage: UNK

REACTIONS (8)
  - Arthropod bite [Unknown]
  - Influenza [Recovered/Resolved]
  - Muscle tightness [Unknown]
  - Product dose omission [Unknown]
  - Nasopharyngitis [Recovered/Resolved]
  - Chronic myeloid leukaemia [Fatal]
  - Memory impairment [Unknown]
  - Blood pressure increased [Unknown]

NARRATIVE: CASE EVENT DATE: 201902
